FAERS Safety Report 10469466 (Version 1)
Quarter: 2014Q3

REPORT INFORMATION
  Report Type: Spontaneous
  Country: US (occurrence: None)
  Receive Date: 20140904
  Receipt Date: 20140904
  Transmission Date: 20150326
  Serious: No
  Sender: FDA-Public Use
  Company Number: 229118

PATIENT
  Age: 75 Year
  Sex: Female

DRUGS (1)
  1. PICATO [Suspect]
     Active Substance: INGENOL MEBUTATE
     Indication: ACTINIC KERATOSIS
     Dosage: [PATIENT STATED THAT SHE DID 2 DAYS OF THERAPY 3 WEEKS AGO EXACT DATE UNKNOWN.?1 IN 1 D

REACTIONS (3)
  - Drug administered at inappropriate site [None]
  - No adverse event [None]
  - Drug ineffective [None]
